FAERS Safety Report 9233553 (Version 4)
Quarter: 2013Q2

REPORT INFORMATION
  Report Type: Spontaneous
  Country: US (occurrence: US)
  Receive Date: 20130416
  Receipt Date: 20130531
  Transmission Date: 20140414
  Serious: Yes (Other)
  Sender: FDA-Public Use
  Company Number: US-TEVA-396651USA

PATIENT
  Age: 57 Year
  Sex: Female

DRUGS (3)
  1. PROGESTERONE [Suspect]
     Dates: start: 20120823
  2. THYROID THERAPY [Concomitant]
  3. ESTRATEST HS [Concomitant]

REACTIONS (14)
  - Cerebrospinal fluid leakage [Unknown]
  - Thinking abnormal [Unknown]
  - Mental disorder [Unknown]
  - Oestradiol decreased [Recovering/Resolving]
  - Progesterone decreased [Recovering/Resolving]
  - Myalgia [Unknown]
  - Adverse event [Unknown]
  - Arthralgia [Unknown]
  - Drug ineffective [Unknown]
  - Fatigue [Unknown]
  - Asthenia [Unknown]
  - Nausea [Unknown]
  - Headache [Unknown]
  - Vomiting [Unknown]
